FAERS Safety Report 19173944 (Version 2)
Quarter: 2021Q2

REPORT INFORMATION
  Report Type: Spontaneous
  Country: TR (occurrence: ER)
  Receive Date: 20210423
  Receipt Date: 20210506
  Transmission Date: 20210717
  Serious: Yes (Death, Hospitalization)
  Sender: FDA-Public Use
  Company Number: ER-ASSERTIO THERAPEUTICS, INC.-ER-2021AST000058

PATIENT
  Age: 37 Year
  Sex: Male

DRUGS (1)
  1. DICLOFENAC [Suspect]
     Active Substance: DICLOFENAC
     Indication: PRODUCT USED FOR UNKNOWN INDICATION
     Dosage: IN THE RIGHT LEG
     Route: 030

REACTIONS (3)
  - Acute kidney injury [Fatal]
  - Necrotising fasciitis [Fatal]
  - Rhabdomyolysis [Fatal]
